FAERS Safety Report 10758579 (Version 1)
Quarter: 2015Q1

REPORT INFORMATION
  Report Type: Report from Study
  Country: US (occurrence: US)
  Receive Date: 20150203
  Receipt Date: 20150203
  Transmission Date: 20150721
  Serious: Yes (Other)
  Sender: FDA-Public Use
  Company Number: US-AMGEN-USASL2015008709

PATIENT
  Age: 75 Year
  Sex: Female
  Weight: 59 kg

DRUGS (2)
  1. ACTONEL [Suspect]
     Active Substance: RISEDRONATE SODIUM
     Indication: BONE DISORDER
     Dosage: UNK
     Route: 065
     Dates: start: 200503
  2. ENBREL [Suspect]
     Active Substance: ETANERCEPT
     Indication: RHEUMATOID ARTHRITIS
     Dosage: 50 MG, QWK
     Route: 058
     Dates: start: 200108

REACTIONS (3)
  - Pain in jaw [Unknown]
  - Macular fibrosis [Unknown]
  - Colectomy [Unknown]

NARRATIVE: CASE EVENT DATE: 2010
